FAERS Safety Report 8734209 (Version 2)
Quarter: 2012Q4

REPORT INFORMATION
  Report Type: 
  Country: US (occurrence: US)
  Receive Date: 20120821
  Receipt Date: 20121003
  Transmission Date: 20130627
  Serious: Yes (Death, Other)
  Sender: FDA-Public Use
  Company Number: US-SANOFI-AVENTIS-2012SA058397

PATIENT
  Age: 72 Year
  Sex: Female
  Weight: 66 kg

DRUGS (12)
  1. AMBIEN [Suspect]
     Indication: INSOMNIA
     Route: 048
     Dates: start: 2000, end: 20120710
  2. TARCEVA [Suspect]
     Indication: NON-SMALL CELL LUNG CANCER
     Route: 048
     Dates: start: 20120607, end: 20120712
  3. TARCEVA [Suspect]
     Indication: NON-SMALL CELL LUNG CANCER
     Route: 048
     Dates: end: 20120801
  4. ANTINEOPLASTIC AGENTS [Suspect]
     Indication: NON-SMALL CELL LUNG CANCER
     Route: 048
     Dates: start: 20120607, end: 20120712
  5. ANTINEOPLASTIC AGENTS [Suspect]
     Indication: NON-SMALL CELL LUNG CANCER
     Route: 048
     Dates: end: 20120726
  6. ADVAIR [Concomitant]
     Dates: start: 20111101
  7. CYMBALTA [Concomitant]
     Dates: start: 20120523
  8. MAGNESIUM [Concomitant]
     Dates: start: 20120411
  9. OXYCODONE [Concomitant]
     Dates: start: 20120606
  10. OXYCONTIN [Concomitant]
     Dates: start: 20120606
  11. PREVACID [Concomitant]
     Dates: start: 201202
  12. SPIRIVA [Concomitant]
     Dates: start: 2006

REACTIONS (29)
  - Respiratory failure [Fatal]
  - Dyspnoea [Fatal]
  - Pulmonary embolism [Unknown]
  - Pneumopericardium [Unknown]
  - Hypomagnesaemia [Unknown]
  - Hypotension [Unknown]
  - Heart rate decreased [Unknown]
  - Hypokalaemia [Unknown]
  - Metabolic acidosis [Unknown]
  - Blood lactic acid increased [Unknown]
  - Hypocalcaemia [Unknown]
  - Blood bilirubin increased [Unknown]
  - Failure to thrive [Unknown]
  - Hyperglycaemia [Unknown]
  - Glycosylated haemoglobin increased [Unknown]
  - Rash maculo-papular [Unknown]
  - Rash pruritic [Unknown]
  - Chest pain [Unknown]
  - Oedema peripheral [Unknown]
  - Decreased appetite [Unknown]
  - Blood chloride decreased [Unknown]
  - Carbon dioxide decreased [Unknown]
  - Blood albumin decreased [Unknown]
  - Atelectasis [Unknown]
  - Pleural effusion [Unknown]
  - Fatigue [Unknown]
  - Confusional state [Unknown]
  - Nausea [Unknown]
  - Disorientation [Unknown]
